FAERS Safety Report 14907131 (Version 2)
Quarter: 2018Q2

REPORT INFORMATION
  Report Type: Report from Study
  Country: PL (occurrence: PL)
  Receive Date: 20180517
  Receipt Date: 20180618
  Transmission Date: 20180711
  Serious: Yes (Death, Hospitalization)
  Sender: FDA-Public Use
  Company Number: PL-ROCHE-2124887

PATIENT
  Sex: Female
  Weight: 58 kg

DRUGS (7)
  1. BEVACIZUMAB. [Suspect]
     Active Substance: BEVACIZUMAB
     Indication: NON-SMALL CELL LUNG CANCER RECURRENT
     Dosage: ON 01/MAR/2018, SHE RECEIVED LAST DOSE OF  BEVACZIUMAB INFUSION (ACTUAL DOSE 870 MG, CYCLE 5 DAY 1)
     Route: 042
     Dates: start: 20180301, end: 20180301
  2. PACLITAXEL. [Suspect]
     Active Substance: PACLITAXEL
     Route: 065
     Dates: start: 20171130
  3. BEVACIZUMAB. [Suspect]
     Active Substance: BEVACIZUMAB
     Route: 065
     Dates: start: 20171130
  4. CARBOPLATIN. [Suspect]
     Active Substance: CARBOPLATIN
     Route: 065
     Dates: start: 20171130
  5. CARBOPLATIN. [Suspect]
     Active Substance: CARBOPLATIN
     Indication: NON-SMALL CELL LUNG CANCER RECURRENT
     Dosage: ON 22/MAR/2018, SHE RECIEVED THE LAST DOSE OF CARBOPLATIN (ACTUAL DOSE 552 MG, CYCLE 6 DAY 1) PRIOR
     Route: 065
     Dates: start: 20180322, end: 20180322
  6. PACLITAXEL. [Suspect]
     Active Substance: PACLITAXEL
     Indication: NON-SMALL CELL LUNG CANCER RECURRENT
     Dosage: ON 22/MAR/2018, SHE RECIEVED THE LAST DOSE OF PACLITAXEL (ACTUAL DOSE 334 MG, CYCLE 6 DAY 1) PRIOR T
     Route: 065
     Dates: start: 20180322, end: 20180322
  7. LEVOTHYROXINUM NATRICUM [Concomitant]
     Route: 065
     Dates: start: 2010

REACTIONS (1)
  - Cerebrovascular accident [Fatal]

NARRATIVE: CASE EVENT DATE: 20180328
